FAERS Safety Report 25390108 (Version 1)
Quarter: 2025Q2

REPORT INFORMATION
  Report Type: Spontaneous
  Country: US (occurrence: None)
  Receive Date: 20250602
  Receipt Date: 20250602
  Transmission Date: 20250716
  Serious: Yes (Hospitalization)
  Sender: FDA-CTU
  Company Number: None

PATIENT
  Age: 60 Year
  Sex: Male
  Weight: 106 kg

DRUGS (1)
  1. RIVAROXABAN [Suspect]
     Active Substance: RIVAROXABAN
     Dosage: FREQUENCY : TWICE A DAY;?
     Route: 048
     Dates: start: 20250114

REACTIONS (6)
  - Haemorrhage [None]
  - Faeces discoloured [None]
  - Dyspnoea [None]
  - Gastrointestinal haemorrhage [None]
  - Haemoglobin decreased [None]
  - Abdominal mass [None]

NARRATIVE: CASE EVENT DATE: 20250116
